FAERS Safety Report 8778490 (Version 3)
Quarter: 2013Q2

REPORT INFORMATION
  Report Type: Spontaneous
  Country: US (occurrence: US)
  Receive Date: 20120912
  Receipt Date: 20130419
  Transmission Date: 20140414
  Serious: Yes (Death, Other)
  Sender: FDA-Public Use
  Company Number: US-GILEAD-2012-0060989

PATIENT
  Sex: Male

DRUGS (2)
  1. LETAIRIS [Suspect]
     Indication: PULMONARY HYPERTENSION
     Dosage: 5 MG, UNK
     Route: 048
     Dates: start: 20120518, end: 20120904
  2. LETAIRIS [Suspect]
     Indication: SCLERODERMA

REACTIONS (4)
  - Death [Fatal]
  - Sepsis [Unknown]
  - Hypotension [Unknown]
  - Cardiac disorder [Unknown]
